FAERS Safety Report 6367946-9 (Version None)
Quarter: 2009Q3

REPORT INFORMATION
  Report Type: 
  Country: None (occurrence: None)
  Receive Date: 20090922
  Receipt Date: 20090410
  Transmission Date: 20100115
  Serious: No
  Sender: FDA-Public Use
  Company Number: A0778103A

PATIENT
  Age: 73 Year
  Sex: Female

DRUGS (3)
  1. SEREVENT [Suspect]
     Dosage: 1PUFF TWICE PER DAY
     Route: 055
  2. PAIN MEDICATIONS [Concomitant]
  3. STOOL SOFTENER [Concomitant]

REACTIONS (2)
  - STRESS [None]
  - TONGUE ERUPTION [None]
